FAERS Safety Report 14334326 (Version 4)
Quarter: 2018Q1

REPORT INFORMATION
  Report Type: Report from Study
  Country: CO (occurrence: CO)
  Receive Date: 20171228
  Receipt Date: 20180214
  Transmission Date: 20180509
  Serious: Yes (Other)
  Sender: FDA-Public Use
  Company Number: PHHY2017CO189498

PATIENT
  Sex: Female
  Weight: 69 kg

DRUGS (7)
  1. AMLODIPINE [Suspect]
     Active Substance: AMLODIPINE BESYLATE
     Indication: BLOOD PRESSURE ABNORMAL
     Route: 065
  2. ESCITALOPRAM [Suspect]
     Active Substance: ESCITALOPRAM OXALATE
     Indication: PRODUCT USED FOR UNKNOWN INDICATION
     Route: 065
  3. SIGNIFOR [Suspect]
     Active Substance: PASIREOTIDE
     Indication: PITUITARY-DEPENDENT CUSHING^S SYNDROME
     Dosage: 0.6 MG, BID
     Route: 058
     Dates: start: 20170802, end: 20171201
  4. LOSARTAN. [Suspect]
     Active Substance: LOSARTAN
     Indication: BLOOD PRESSURE ABNORMAL
     Route: 065
  5. LEVOTHYROXINE. [Concomitant]
     Active Substance: LEVOTHYROXINE
     Indication: HYPOTHYROIDISM
     Route: 065
  6. KETOCONAZOLE. [Concomitant]
     Active Substance: KETOCONAZOLE
     Indication: CORTISOL ABNORMAL
     Route: 065
  7. APO-CLONAZEPAM [Concomitant]
     Active Substance: CLONAZEPAM
     Indication: PRODUCT USED FOR UNKNOWN INDICATION
     Dosage: UNK
     Route: 065

REACTIONS (13)
  - Pruritus [Unknown]
  - Gait disturbance [Unknown]
  - Pain in extremity [Unknown]
  - Fatigue [Unknown]
  - Lip dry [Unknown]
  - Thirst [Unknown]
  - Diarrhoea [Unknown]
  - Diabetes insipidus [Unknown]
  - Abnormal faeces [Unknown]
  - Oedema peripheral [Unknown]
  - Weight increased [Unknown]
  - Pituitary tumour [Unknown]
  - Neoplasm [Unknown]
